FAERS Safety Report 9740089 (Version 2)
Quarter: 2014Q1

REPORT INFORMATION
  Report Type: Spontaneous
  Country: JP (occurrence: JP)
  Receive Date: 20131209
  Receipt Date: 20140306
  Transmission Date: 20141002
  Serious: Yes (Other)
  Sender: FDA-Public Use
  Company Number: JP-ELI_LILLY_AND_COMPANY-JP201311009184

PATIENT
  Age: 67 Year
  Sex: Female

DRUGS (1)
  1. GEMZAR [Suspect]
     Indication: PANCREATIC CARCINOMA STAGE IV
     Dosage: 1000 MG/M2, UNK
     Route: 042
     Dates: start: 201304

REACTIONS (3)
  - Liver abscess [Recovering/Resolving]
  - Peritoneal perforation [Recovering/Resolving]
  - Bone marrow failure [Unknown]
